FAERS Safety Report 6771554-5 (Version None)
Quarter: 2010Q2

REPORT INFORMATION
  Report Type: 
  Country: None (occurrence: None)
  Receive Date: 20100616
  Receipt Date: 20100527
  Transmission Date: 20101027
  Serious: Yes (Life-Threatening)
  Sender: FDA-Public Use
  Company Number: TR-BAXTER-2010BH014465

PATIENT
  Age: 12 Year
  Sex: Male
  Weight: 25 kg

DRUGS (7)
  1. GAMMAGARD LIQUID [Suspect]
     Indication: HYPER IGM SYNDROME
     Route: 065
     Dates: start: 20100513, end: 20100513
  2. GAMMAGARD LIQUID [Suspect]
     Indication: PRIMARY IMMUNODEFICIENCY SYNDROME
     Route: 065
     Dates: start: 20100513, end: 20100513
  3. ASPIRINE [Concomitant]
  4. TALCID [Concomitant]
  5. BACTRIM [Concomitant]
  6. DELTACORTRIL [Concomitant]
  7. IMUNAR [Concomitant]

REACTIONS (3)
  - PYREXIA [None]
  - TREMOR [None]
  - VOMITING [None]
